FAERS Safety Report 5093644-8 (Version None)
Quarter: 2006Q3

REPORT INFORMATION
  Report Type: 
  Country: None (occurrence: None)
  Receive Date: 20060829
  Receipt Date: 20060814
  Transmission Date: 20061208
  Serious: Yes (Death)
  Sender: FDA-Public Use
  Company Number: 2006S1007661

PATIENT
  Age: 51 Year
  Sex: Male

DRUGS (2)
  1. CLOZAPINE [Suspect]
     Dosage: 500 MG; QD; PO
     Route: 048
     Dates: start: 20040101
  2. RISPERIDONE [Concomitant]

REACTIONS (1)
  - DEATH [None]
